FAERS Safety Report 10418419 (Version 2)
Quarter: 2014Q3

REPORT INFORMATION
  Report Type: Spontaneous
  Country: US (occurrence: US)
  Receive Date: 20140829
  Receipt Date: 20140829
  Transmission Date: 20150326
  Serious: Yes (Hospitalization, Other)
  Sender: FDA-Public Use
  Company Number: US-009507513-2010SP012617

PATIENT
  Sex: Female
  Weight: 60.78 kg

DRUGS (2)
  1. NUVARING [Suspect]
     Active Substance: ETHINYL ESTRADIOL\ETONOGESTREL
     Indication: CONTRACEPTION
     Route: 067
     Dates: start: 200303, end: 200505
  2. TOPIRAMATE. [Concomitant]
     Active Substance: TOPIRAMATE
     Indication: PRODUCT USED FOR UNKNOWN INDICATION

REACTIONS (17)
  - Deep vein thrombosis [Recovered/Resolved]
  - Thrombophlebitis [Unknown]
  - Pulmonary mass [Unknown]
  - Haemorrhoids [Unknown]
  - Diverticulum [Unknown]
  - Ovarian cyst [Unknown]
  - Anaemia [Unknown]
  - Uterine enlargement [Unknown]
  - Pulmonary embolism [Unknown]
  - Vena cava filter insertion [Unknown]
  - Pancreatic mass [Unknown]
  - Pulmonary infarction [Unknown]
  - Endometriosis [Unknown]
  - Abnormal withdrawal bleeding [Unknown]
  - Pulmonary embolism [Unknown]
  - Deep vein thrombosis [Unknown]
  - Muscle spasms [Unknown]

NARRATIVE: CASE EVENT DATE: 20050502
